FAERS Safety Report 8177456-4 (Version None)
Quarter: 2012Q1

REPORT INFORMATION
  Report Type: 
  Country: None (occurrence: None)
  Receive Date: 20120301
  Receipt Date: 20120227
  Transmission Date: 20120608
  Serious: No
  Sender: FDA-Public Use
  Company Number: US-PFIZER INC-2012015592

PATIENT
  Sex: Female

DRUGS (8)
  1. COUMADIN [Concomitant]
     Dosage: UNK
  2. LYRICA [Suspect]
     Indication: NEUROPATHY PERIPHERAL
     Dosage: 75 MG, 2X/DAY
     Route: 048
     Dates: start: 20101209
  3. SIMVASTATIN [Concomitant]
     Dosage: UNK
  4. DIOVAN HCT [Concomitant]
     Dosage: UNK
  5. ZOLPIDEM [Concomitant]
     Dosage: UNK
  6. LEXAPRO [Concomitant]
     Dosage: UNK
  7. LISINOPRIL AND HYDROCHLOROTHIAZIDE [Concomitant]
     Dosage: UNK
  8. METFORMIN [Concomitant]
     Dosage: UNK

REACTIONS (1)
  - MEMORY IMPAIRMENT [None]
